FAERS Safety Report 9382733 (Version 1)
Quarter: 2013Q3

REPORT INFORMATION
  Report Type: Spontaneous
  Country: US (occurrence: US)
  Receive Date: 20130703
  Receipt Date: 20130703
  Transmission Date: 20140515
  Serious: No
  Sender: FDA-Public Use
  Company Number: US-009507513-1307USA000910

PATIENT
  Age: 45 Year
  Sex: Female

DRUGS (5)
  1. SAPHRIS [Suspect]
     Indication: BIPOLAR DISORDER
     Dosage: 5 MG, BID
     Route: 060
     Dates: start: 201303, end: 20130610
  2. LAMICTAL [Concomitant]
  3. VALIUM [Concomitant]
  4. SUMATRIPTAN [Concomitant]
  5. FLEXERIL [Concomitant]

REACTIONS (2)
  - Oedema [Recovering/Resolving]
  - Weight increased [Recovering/Resolving]
